FAERS Safety Report 5068459-7 (Version None)
Quarter: 2006Q3

REPORT INFORMATION
  Report Type: 
  Country: None (occurrence: None)
  Receive Date: 20060802
  Receipt Date: 20051007
  Transmission Date: 20061208
  Serious: No
  Sender: FDA-Public Use
  Company Number: US-BRISTOL-MYERS SQUIBB COMPANY-13137914

PATIENT
  Age: 86 Year
  Sex: Male
  Weight: 68 kg

DRUGS (4)
  1. COUMADIN [Suspect]
     Indication: ATRIAL FIBRILLATION
  2. COZAAR [Concomitant]
  3. LASIX [Concomitant]
  4. POTASSIUM SUPPLEMENT [Concomitant]

REACTIONS (7)
  - BALANCE DISORDER [None]
  - DIARRHOEA [None]
  - FATIGUE [None]
  - LETHARGY [None]
  - PAIN IN EXTREMITY [None]
  - PRURITUS [None]
  - SENSATION OF HEAVINESS [None]
